FAERS Safety Report 19403821 (Version 1)
Quarter: 2021Q2

REPORT INFORMATION
  Report Type: Spontaneous
  Country: US (occurrence: US)
  Receive Date: 20210611
  Receipt Date: 20210611
  Transmission Date: 20210717
  Serious: Yes (Death)
  Sender: FDA-Public Use
  Company Number: None

PATIENT
  Sex: Male

DRUGS (8)
  1. CYTARABINE 100 MG/5 ML VIAL PF [Suspect]
     Active Substance: CYTARABINE
     Indication: ACUTE MYELOID LEUKAEMIA
     Route: 058
  2. ZOFRAN 4 MG TAB [Concomitant]
  3. ACETAMINOPHEN 325 MG TAB [Concomitant]
  4. VENCLEXTA 100 MG TAB [Concomitant]
  5. ACYCLOVIR 200 MG TAB [Concomitant]
  6. VORICONAZOLE 200 MG TAB [Concomitant]
  7. ALLOPURIONOL 300 MG TAB [Concomitant]
  8. CLINDAMYCIN 300 MG CAP [Concomitant]

REACTIONS (1)
  - Death [None]
